FAERS Safety Report 10211031 (Version 1)
Quarter: 2014Q2

REPORT INFORMATION
  Report Type: Spontaneous
  Country: US (occurrence: US)
  Receive Date: 20140602
  Receipt Date: 20140602
  Transmission Date: 20141212
  Serious: Yes (Hospitalization)
  Sender: FDA-Public Use
  Company Number: US-TEVA-485234USA

PATIENT
  Sex: Female

DRUGS (2)
  1. COPAXONE [Suspect]
     Dates: start: 200601
  2. AMPYRA [Suspect]
     Dates: start: 201003

REACTIONS (6)
  - Constipation [Unknown]
  - Bladder disorder [Unknown]
  - Gastric disorder [Unknown]
  - Asthenia [Unknown]
  - Stress [Unknown]
  - Sleep disorder [Unknown]
